FAERS Safety Report 23447008 (Version 1)
Quarter: 2024Q1

REPORT INFORMATION
  Report Type: Spontaneous
  Country: US (occurrence: None)
  Receive Date: 20240125
  Receipt Date: 20240125
  Transmission Date: 20240410
  Serious: Yes (Hospitalization, Other)
  Sender: FDA-Public Use
  Company Number: None

PATIENT
  Age: 53 Year
  Sex: Female

DRUGS (11)
  1. TRIKAFTA [Suspect]
     Active Substance: ELEXACAFTOR\IVACAFTOR\TEZACAFTOR
     Indication: Cystic fibrosis
     Dates: end: 20230307
  2. INSULIN NOS [Concomitant]
     Active Substance: INSULIN NOS
  3. TOBRAMYCIN [Concomitant]
     Active Substance: TOBRAMYCIN
  4. PULMOZYME [Concomitant]
     Active Substance: DORNASE ALFA
  5. AZITHROMYCIN [Concomitant]
     Active Substance: AZITHROMYCIN
  6. SINGULAIR [Concomitant]
     Active Substance: MONTELUKAST SODIUM
  7. CREON [Concomitant]
     Active Substance: PANCRELIPASE AMYLASE\PANCRELIPASE LIPASE\PANCRELIPASE PROTEASE
  8. ADVAIR HFA [Concomitant]
     Active Substance: FLUTICASONE PROPIONATE\SALMETEROL XINAFOATE
  9. CALCIUM [Concomitant]
     Active Substance: CALCIUM
  10. VITAMIN D [Concomitant]
     Active Substance: VITAMIN D NOS
  11. IRON [Concomitant]
     Active Substance: IRON

REACTIONS (10)
  - Discomfort [None]
  - Intestinal obstruction [None]
  - Vertigo [None]
  - Dizziness [None]
  - Hypertension [None]
  - Heart rate increased [None]
  - Headache [None]
  - Blood glucose fluctuation [None]
  - Chest pain [None]
  - Oxygen saturation decreased [None]

NARRATIVE: CASE EVENT DATE: 20200424
